FAERS Safety Report 11006098 (Version 2)
Quarter: 2015Q2

REPORT INFORMATION
  Report Type: Spontaneous
  Country: US (occurrence: US)
  Receive Date: 20150409
  Receipt Date: 20150603
  Transmission Date: 20150821
  Serious: Yes (Death, Other)
  Sender: FDA-Public Use
  Company Number: US-ASTRAZENECA-2014SE83420

PATIENT
  Age: 852 Month
  Sex: Female
  Weight: 174.2 kg

DRUGS (18)
  1. PROMETHAZINE [Concomitant]
     Active Substance: PROMETHAZINE\PROMETHAZINE HYDROCHLORIDE
     Dosage: ONE PO Q 4-6 HOURS PRN
     Route: 048
     Dates: start: 20110613
  2. ALLEGRA-D [Concomitant]
     Active Substance: FEXOFENADINE\PSEUDOEPHEDRINE
  3. WARFARIN [Concomitant]
     Active Substance: WARFARIN
     Dosage: DAILY
     Route: 048
     Dates: start: 20121204
  4. GLIMEPIRIDE. [Concomitant]
     Active Substance: GLIMEPIRIDE
     Route: 048
     Dates: start: 20131008
  5. METFORMIN [Concomitant]
     Active Substance: METFORMIN HYDROCHLORIDE
     Dosage: TWICE PO DAILY
     Route: 048
     Dates: start: 20111115
  6. DIGOX [Concomitant]
     Active Substance: DIGOXIN
     Dosage: 125 MCG DAILY
     Route: 065
  7. ONDANSETRON [Concomitant]
     Active Substance: ONDANSETRON
     Route: 065
     Dates: start: 20131211
  8. LORAZEPAM. [Concomitant]
     Active Substance: LORAZEPAM
     Route: 065
  9. CITALOPRAM [Concomitant]
     Active Substance: CITALOPRAM HYDROBROMIDE
     Route: 065
     Dates: start: 20140120
  10. TRAZODONE [Concomitant]
     Active Substance: TRAZODONE HYDROCHLORIDE
     Route: 065
     Dates: start: 20121204
  11. BYETTA [Suspect]
     Active Substance: EXENATIDE
     Dosage: UNK
     Route: 065
     Dates: start: 20080702, end: 20111013
  12. FUROSEMIDE. [Concomitant]
     Active Substance: FUROSEMIDE
     Route: 065
  13. BYETTA [Suspect]
     Active Substance: EXENATIDE
     Dosage: 10 MCG
     Route: 065
     Dates: start: 20090106
  14. LISINOPRIL. [Concomitant]
     Active Substance: LISINOPRIL
     Route: 048
     Dates: start: 20130810
  15. JANUMET [Suspect]
     Active Substance: METFORMIN HYDROCHLORIDE\SITAGLIPTIN PHOSPHATE
     Dosage: 50-100 MG
     Route: 065
     Dates: start: 20130327
  16. JANUMET [Suspect]
     Active Substance: METFORMIN HYDROCHLORIDE\SITAGLIPTIN PHOSPHATE
     Dosage: UNK
     Route: 065
     Dates: start: 20130215, end: 20130606
  17. SYNTHROID [Concomitant]
     Active Substance: LEVOTHYROXINE SODIUM
     Dosage: 175MCG TWO PO DAILY
     Route: 048
     Dates: start: 20120703
  18. ADVAIR HFA [Concomitant]
     Active Substance: FLUTICASONE PROPIONATE\SALMETEROL XINAFOATE
     Route: 065

REACTIONS (3)
  - Pancreatic mass [Unknown]
  - Metastases to liver [Unknown]
  - Adenocarcinoma pancreas [Fatal]

NARRATIVE: CASE EVENT DATE: 201310
